FAERS Safety Report 17830116 (Version 1)
Quarter: 2020Q2

REPORT INFORMATION
  Report Type: Spontaneous
  Country: US (occurrence: US)
  Receive Date: 20200527
  Receipt Date: 20200527
  Transmission Date: 20200714
  Serious: No
  Sender: FDA-Public Use
  Company Number: US-CADILA HEALTHCARE LIMITED-US-ZYDUS-049189

PATIENT

DRUGS (1)
  1. DEXTROAMPHET SACCHARAT, AMPHET ASPARTATE, DEXTROAMPHET SULFATE AND AMPHET SULFAT [Suspect]
     Active Substance: AMPHETAMINE ASPARTATE\AMPHETAMINE SULFATE\DEXTROAMPHETAMINE SACCHARATE\DEXTROAMPHETAMINE SULFATE
     Indication: PRODUCT USED FOR UNKNOWN INDICATION
     Dosage: 10 MILLIGRAM, BID
     Route: 065

REACTIONS (7)
  - Product physical consistency issue [Recovered/Resolved]
  - Product solubility abnormal [Recovered/Resolved]
  - Product taste abnormal [Recovered/Resolved]
  - Product use complaint [Recovered/Resolved]
  - Drug ineffective [Recovered/Resolved]
  - Product residue present [Recovered/Resolved]
  - Drug effect faster than expected [Recovered/Resolved]
